FAERS Safety Report 8518754-1 (Version None)
Quarter: 2012Q3

REPORT INFORMATION
  Report Type: 
  Country: None (occurrence: None)
  Receive Date: 20120718
  Receipt Date: 20120711
  Transmission Date: 20120928
  Serious: Yes (Other)
  Sender: FDA-Public Use
  Company Number: PHEH2012US013645

PATIENT
  Sex: Female
  Weight: 90.703 kg

DRUGS (1)
  1. GILENYA [Suspect]
     Indication: MULTIPLE SCLEROSIS
     Dosage: 0.5 MG, QD
     Route: 048
     Dates: start: 20120403, end: 20120409

REACTIONS (3)
  - HEART RATE DECREASED [None]
  - CHEST PAIN [None]
  - LETHARGY [None]
